FAERS Safety Report 24551410 (Version 2)
Quarter: 2025Q4

REPORT INFORMATION
  Report Type: Report from Study
  Country: CO (occurrence: CO)
  Receive Date: 20241026
  Receipt Date: 20251202
  Transmission Date: 20260118
  Serious: Yes (Hospitalization, Other)
  Sender: ABBVIE
  Company Number: CO-ABBVIE-5939528

PATIENT
  Age: 39 Year
  Sex: Female
  Weight: 54 kg

DRUGS (2)
  1. RINVOQ [Suspect]
     Active Substance: UPADACITINIB
     Indication: Rheumatoid arthritis
     Dosage: FORM STRENGTH 15 MILLIGRAM?MODIFIED-RELEASE FILM-COATED TABLET
     Route: 048
     Dates: start: 20240711, end: 20240920
  2. RINVOQ [Suspect]
     Active Substance: UPADACITINIB
     Indication: Rheumatoid arthritis
     Dosage: FORM STRENGTH 15 MILLIGRAM?MODIFIED-RELEASE FILM-COATED TABLET
     Route: 048
     Dates: start: 202309

REACTIONS (16)
  - Morganella infection [Not Recovered/Not Resolved]
  - Mobility decreased [Recovering/Resolving]
  - Procedural pain [Not Recovered/Not Resolved]
  - Medical device removal [Recovering/Resolving]
  - Back pain [Unknown]
  - Headache [Unknown]
  - Oropharyngeal pain [Unknown]
  - Skin papilloma [Unknown]
  - Breast mass [Unknown]
  - Arteriosclerosis [Unknown]
  - Mass [Unknown]
  - Limb mass [Unknown]
  - Joint range of motion decreased [Unknown]
  - Arthralgia [Unknown]
  - Ankle operation [Unknown]
  - Hyperkeratosis [Unknown]

NARRATIVE: CASE EVENT DATE: 20231210
